FAERS Safety Report 4366612-9 (Version None)
Quarter: 2004Q2

REPORT INFORMATION
  Report Type: 
  Country: None (occurrence: None)
  Receive Date: 20040520
  Receipt Date: 20040504
  Transmission Date: 20050107
  Serious: Yes (Hospitalization)
  Sender: FDA-Public Use
  Company Number: 192995

PATIENT
  Sex: Female
  Weight: 61.2356 kg

DRUGS (4)
  1. AVONEX [Suspect]
     Indication: MULTIPLE SCLEROSIS
     Dosage: 30 MCG QW IM
     Route: 030
     Dates: start: 19980101, end: 20040101
  2. AVONEX [Suspect]
     Indication: MULTIPLE SCLEROSIS
     Dosage: 30 MCG QW IM
     Route: 030
     Dates: start: 20040101
  3. BACLOFEN [Concomitant]
  4. RANITIDINDE [Concomitant]

REACTIONS (9)
  - ABASIA [None]
  - ASTHENIA [None]
  - GALLBLADDER DISORDER [None]
  - INSOMNIA [None]
  - METASTASES TO GASTROINTESTINAL TRACT [None]
  - OVARIAN CANCER [None]
  - PNEUMONIA [None]
  - URINARY TRACT INFECTION [None]
  - VOMITING [None]
